FAERS Safety Report 8592894 (Version 3)
Quarter: 2013Q2

REPORT INFORMATION
  Report Type: Spontaneous
  Country: US (occurrence: US)
  Receive Date: 20120604
  Receipt Date: 20130617
  Transmission Date: 20140414
  Serious: Yes (Hospitalization, Disabling)
  Sender: FDA-Public Use
  Company Number: US-ASTRAZENECA-2012SE34810

PATIENT
  Age: 658 Month
  Sex: Female
  Weight: 77.1 kg

DRUGS (8)
  1. NEXIUM [Suspect]
     Indication: GASTROOESOPHAGEAL REFLUX DISEASE
     Dosage: ONE TO TIMES A DAY
     Route: 048
  2. OMEPRAZOLE [Suspect]
     Route: 048
  3. OMEPRAZOLE [Suspect]
     Route: 048
     Dates: start: 20100928
  4. TAGAMET [Concomitant]
  5. ZANTAC [Concomitant]
  6. PROTONIX [Concomitant]
  7. OTC CALCIUM [Concomitant]
  8. VITAMIN OTC [Concomitant]

REACTIONS (16)
  - Musculoskeletal disorder [Unknown]
  - Pneumonia [Unknown]
  - Back disorder [Unknown]
  - Liver disorder [Unknown]
  - Hand fracture [Unknown]
  - Osteoporosis [Unknown]
  - Bone density decreased [Unknown]
  - Multiple fractures [Unknown]
  - Fracture [Unknown]
  - Bone pain [Unknown]
  - Arthritis [Unknown]
  - Back pain [Unknown]
  - Nephrolithiasis [Unknown]
  - Osteogenesis imperfecta [Unknown]
  - Chronic obstructive pulmonary disease [Unknown]
  - Depression [Unknown]
